FAERS Safety Report 13903788 (Version 1)
Quarter: 2017Q3

REPORT INFORMATION
  Report Type: Spontaneous
  Country: US (occurrence: US)
  Receive Date: 20170824
  Receipt Date: 20170824
  Transmission Date: 20171127
  Serious: Yes (Hospitalization, Other)
  Sender: FDA-Public Use
  Company Number: US-ABBVIE-17P-163-2074626-00

PATIENT
  Age: 20 Year
  Sex: Female
  Weight: 40 kg

DRUGS (5)
  1. AXITINIB [Suspect]
     Active Substance: AXITINIB
     Indication: ALVEOLAR SOFT PART SARCOMA
     Route: 048
     Dates: start: 20170703, end: 20170715
  2. PEMBROLIZUMAB. [Suspect]
     Active Substance: PEMBROLIZUMAB
     Indication: ALVEOLAR SOFT PART SARCOMA
     Route: 065
     Dates: start: 20170710, end: 20170710
  3. ZOLOFT [Concomitant]
     Active Substance: SERTRALINE HYDROCHLORIDE
     Indication: DEPRESSION
     Route: 048
  4. MARINOL [Suspect]
     Active Substance: DRONABINOL
     Indication: NAUSEA
     Route: 048
     Dates: start: 20170123, end: 20170725
  5. ZOFRAN [Concomitant]
     Active Substance: ONDANSETRON HYDROCHLORIDE
     Indication: DEPRESSION
     Route: 048

REACTIONS (4)
  - Fall [Unknown]
  - Haemorrhage [Unknown]
  - Generalised tonic-clonic seizure [Recovered/Resolved]
  - Laceration [Unknown]

NARRATIVE: CASE EVENT DATE: 20170715
